FAERS Safety Report 4337079-1 (Version None)
Quarter: 2004Q2

REPORT INFORMATION
  Report Type: 
  Country: None (occurrence: None)
  Receive Date: 20040407
  Receipt Date: 20040325
  Transmission Date: 20050107
  Serious: Yes (Hospitalization)
  Sender: FDA-Public Use
  Company Number: S04-USA-01558-01

PATIENT
  Age: 78 Year
  Sex: Female

DRUGS (6)
  1. NAMENDA [Suspect]
     Indication: DEMENTIA
     Dosage: 5 MG QD PO
     Route: 048
     Dates: start: 20040318, end: 20040324
  2. TRAZODONE HCL [Concomitant]
  3. PAXIL [Concomitant]
  4. IBUPROFEN [Concomitant]
  5. VITAMIN E [Concomitant]
  6. MULTI-VITAMIN [Concomitant]

REACTIONS (2)
  - PANCREATITIS [None]
  - URINARY TRACT INFECTION [None]
